FAERS Safety Report 6449987-6 (Version None)
Quarter: 2009Q4

REPORT INFORMATION
  Report Type: 
  Country: None (occurrence: None)
  Receive Date: 20091123
  Receipt Date: 20091109
  Transmission Date: 20100525
  Serious: Yes (Death, Other)
  Sender: FDA-Public Use
  Company Number: US-BAYER-200939539GPV

PATIENT
  Age: 55 Year
  Sex: Male

DRUGS (4)
  1. REFLUDAN [Suspect]
     Indication: PERIPHERAL ISCHAEMIA
     Route: 042
  2. REFLUDAN [Suspect]
     Dosage: /H
     Route: 042
  3. HEPARIN [Suspect]
     Indication: PERIPHERAL ISCHAEMIA
     Dosage: /24 H
     Route: 042
  4. HEPARIN [Suspect]
     Dosage: 1000 - 1500 IU/H
     Route: 042

REACTIONS (3)
  - DEATH [None]
  - GANGRENE [None]
  - GRAFT THROMBOSIS [None]
